FAERS Safety Report 23310144 (Version 1)
Quarter: 2023Q4

REPORT INFORMATION
  Report Type: Spontaneous
  Country: BR (occurrence: BR)
  Receive Date: 20231218
  Receipt Date: 20231218
  Transmission Date: 20240110
  Serious: Yes (Other)
  Sender: FDA-Public Use
  Company Number: BR-002147023-NVSC2022BR233923

PATIENT
  Sex: Female

DRUGS (9)
  1. CEFADROXIL [Suspect]
     Active Substance: CEFADROXIL
     Indication: Erysipelas
     Dosage: UNK
     Route: 065
     Dates: start: 20231201
  2. MEKINIST [Suspect]
     Active Substance: TRAMETINIB DIMETHYL SULFOXIDE
     Indication: Metastatic malignant melanoma
     Dosage: 2 MG
     Route: 065
     Dates: start: 20221003
  3. MEKINIST [Suspect]
     Active Substance: TRAMETINIB DIMETHYL SULFOXIDE
     Dosage: UNK
     Route: 065
     Dates: start: 20221004
  4. MEKINIST [Suspect]
     Active Substance: TRAMETINIB DIMETHYL SULFOXIDE
     Dosage: UNK
     Route: 065
     Dates: start: 202210
  5. TAFINLAR [Suspect]
     Active Substance: DABRAFENIB MESYLATE
     Indication: Metastatic malignant melanoma
     Dosage: UNK
     Route: 065
     Dates: start: 20221003
  6. TAFINLAR [Suspect]
     Active Substance: DABRAFENIB MESYLATE
     Dosage: 2 DF
     Route: 065
  7. TAFINLAR [Suspect]
     Active Substance: DABRAFENIB MESYLATE
     Dosage: UNK
     Route: 065
     Dates: start: 20221004
  8. TAFINLAR [Suspect]
     Active Substance: DABRAFENIB MESYLATE
     Dosage: UNK
     Route: 065
     Dates: start: 202210
  9. DIMENHYDRINATE [Concomitant]
     Active Substance: DIMENHYDRINATE
     Indication: Product used for unknown indication
     Dosage: UNK
     Route: 065

REACTIONS (45)
  - Erysipelas [Recovering/Resolving]
  - Nervousness [Unknown]
  - Nasal congestion [Recovering/Resolving]
  - Sputum discoloured [Recovering/Resolving]
  - Ocular discomfort [Unknown]
  - Sinusitis [Recovering/Resolving]
  - Migraine [Recovering/Resolving]
  - Pain [Not Recovered/Not Resolved]
  - Neck pain [Not Recovered/Not Resolved]
  - Back pain [Not Recovered/Not Resolved]
  - Chest pain [Not Recovered/Not Resolved]
  - Blood creatine phosphokinase increased [Unknown]
  - Panic attack [Not Recovered/Not Resolved]
  - Blood test abnormal [Not Recovered/Not Resolved]
  - Nausea [Recovering/Resolving]
  - Diarrhoea [Recovered/Resolved]
  - Vomiting [Recovered/Resolved]
  - Erythema [Unknown]
  - Abdominal pain [Unknown]
  - Chills [Recovering/Resolving]
  - Diarrhoea [Not Recovered/Not Resolved]
  - Headache [Unknown]
  - Dyspepsia [Unknown]
  - Malaise [Recovering/Resolving]
  - Musculoskeletal pain [Not Recovered/Not Resolved]
  - Myalgia [Not Recovered/Not Resolved]
  - Fatigue [Not Recovered/Not Resolved]
  - Wound [Recovering/Resolving]
  - Peripheral swelling [Unknown]
  - Pain in extremity [Unknown]
  - Hyperkeratosis [Recovering/Resolving]
  - Foot deformity [Recovered/Resolved]
  - Swelling [Recovering/Resolving]
  - Eating disorder [Unknown]
  - Asthenia [Unknown]
  - Memory impairment [Unknown]
  - General physical health deterioration [Unknown]
  - Heavy menstrual bleeding [Unknown]
  - Oligomenorrhoea [Unknown]
  - Candida infection [Unknown]
  - Somnolence [Unknown]
  - Abdominal discomfort [Unknown]
  - Illness [Unknown]
  - Tachycardia [Not Recovered/Not Resolved]
  - Sluggishness [Unknown]

NARRATIVE: CASE EVENT DATE: 20220101
